FAERS Safety Report 12542643 (Version 3)
Quarter: 2019Q1

REPORT INFORMATION
  Report Type: Spontaneous
  Country: US (occurrence: US)
  Receive Date: 20160709
  Receipt Date: 20190128
  Transmission Date: 20190417
  Serious: No
  Sender: FDA-Public Use
  Company Number: US-009507513-1607USA000169

PATIENT
  Sex: Female

DRUGS (3)
  1. REMERON [Suspect]
     Active Substance: MIRTAZAPINE
     Indication: DEPRESSION
     Dosage: 30 MG, QD
     Route: 048
  2. REMERON [Suspect]
     Active Substance: MIRTAZAPINE
     Indication: POOR QUALITY SLEEP
  3. REMERON [Suspect]
     Active Substance: MIRTAZAPINE
     Route: 048

REACTIONS (6)
  - Sleep disorder [Unknown]
  - Circumstance or information capable of leading to medication error [Unknown]
  - Depression [Unknown]
  - Drug ineffective [Unknown]
  - Product availability issue [Unknown]
  - Throat irritation [Unknown]
